FAERS Safety Report 5601603-9 (Version None)
Quarter: 2008Q1

REPORT INFORMATION
  Report Type: 
  Country: None (occurrence: None)
  Receive Date: 20080124
  Receipt Date: 20080115
  Transmission Date: 20080703
  Serious: Yes (Other)
  Sender: FDA-Public Use
  Company Number: US-ASTRAZENECA-2006UW27938

PATIENT
  Age: 17949 Day
  Sex: Female
  Weight: 90 kg

DRUGS (4)
  1. SEROQUEL [Suspect]
     Indication: SLEEP APNOEA SYNDROME
     Route: 048
     Dates: start: 20020528, end: 20030601
  2. SEROQUEL [Suspect]
     Indication: DEPRESSION
     Route: 048
     Dates: start: 20020528, end: 20030601
  3. REDUX [Concomitant]
  4. GEODON [Concomitant]

REACTIONS (7)
  - BLOOD CHOLESTEROL INCREASED [None]
  - BLOOD TRIGLYCERIDES INCREASED [None]
  - DIABETES MELLITUS [None]
  - DYSPNOEA [None]
  - INTERVERTEBRAL DISC OPERATION [None]
  - NEOPLASM SKIN [None]
  - OBESITY [None]
